FAERS Safety Report 10036276 (Version 1)
Quarter: 2014Q1

REPORT INFORMATION
  Report Type: Spontaneous
  Country: BR (occurrence: BR)
  Receive Date: 20140325
  Receipt Date: 20140325
  Transmission Date: 20141002
  Serious: Yes (Death)
  Sender: FDA-Public Use
  Company Number: BR-009507513-1403BRA011583

PATIENT
  Sex: Male

DRUGS (1)
  1. PRINZIDE [Suspect]
     Route: 048

REACTIONS (1)
  - Death [Fatal]
